FAERS Safety Report 21472968 (Version 19)
Quarter: 2023Q2

REPORT INFORMATION
  Report Type: Spontaneous
  Country: US (occurrence: US)
  Receive Date: 20221018
  Receipt Date: 20230620
  Transmission Date: 20230721
  Serious: No
  Sender: FDA-Public Use
  Company Number: US-DSJP-DSU-2022-137160AA

PATIENT
  Sex: Female
  Weight: 81 kg

DRUGS (12)
  1. TURALIO [Suspect]
     Active Substance: PEXIDARTINIB HYDROCHLORIDE
     Indication: Connective tissue neoplasm
     Dosage: 400 MG, QD
     Route: 048
     Dates: start: 20220929, end: 20221227
  2. TURALIO [Suspect]
     Active Substance: PEXIDARTINIB HYDROCHLORIDE
     Indication: Soft tissue neoplasm
     Dosage: 125 MG, BID
     Route: 048
     Dates: start: 20230309
  3. TURALIO [Suspect]
     Active Substance: PEXIDARTINIB HYDROCHLORIDE
     Dosage: 125 MG, BID
     Route: 048
     Dates: start: 20220929
  4. ALBUTEROL [Concomitant]
     Active Substance: ALBUTEROL
     Indication: Asthma
     Dosage: UNK
     Route: 065
  5. CALCIUM [Concomitant]
     Active Substance: CALCIUM
     Indication: Supportive care
     Dosage: UNK
     Route: 065
  6. METFORMIN [Concomitant]
     Active Substance: METFORMIN HYDROCHLORIDE
     Indication: Diabetes mellitus
     Dosage: UNK
     Route: 065
  7. SINGULAIR [Concomitant]
     Active Substance: MONTELUKAST SODIUM
     Indication: Asthma
     Dosage: UNK
     Route: 065
  8. PRAVASTATIN [Concomitant]
     Active Substance: PRAVASTATIN
     Indication: Blood cholesterol increased
     Dosage: UNK
     Route: 065
  9. PROLIA [Concomitant]
     Active Substance: DENOSUMAB
     Indication: Osteoporosis
     Dosage: UNK
     Route: 065
  10. VITAMIN B12 [Concomitant]
     Active Substance: CYANOCOBALAMIN
     Indication: Supportive care
     Route: 065
  11. VITAMIN C [Concomitant]
     Active Substance: ASCORBIC ACID
     Indication: Supportive care
     Dosage: UNK
     Route: 065
  12. VITAMIN D3 [Concomitant]
     Active Substance: CHOLECALCIFEROL
     Indication: Supportive care
     Dosage: UNK
     Route: 065

REACTIONS (15)
  - Nausea [Recovered/Resolved]
  - Fatigue [Recovered/Resolved]
  - Diarrhoea [Recovered/Resolved]
  - Alopecia [Recovered/Resolved]
  - Swelling of eyelid [Recovered/Resolved]
  - Vomiting [Not Recovered/Not Resolved]
  - Headache [Not Recovered/Not Resolved]
  - Protein urine present [Not Recovered/Not Resolved]
  - Knee operation [Not Recovered/Not Resolved]
  - Diarrhoea [Not Recovered/Not Resolved]
  - Fatigue [Not Recovered/Not Resolved]
  - Nausea [Not Recovered/Not Resolved]
  - Asthenia [Not Recovered/Not Resolved]
  - Frustration tolerance decreased [Not Recovered/Not Resolved]
  - Periorbital swelling [Not Recovered/Not Resolved]

NARRATIVE: CASE EVENT DATE: 20220101
